FAERS Safety Report 7505332-6 (Version None)
Quarter: 2011Q2

REPORT INFORMATION
  Report Type: 
  Country: None (occurrence: None)
  Receive Date: 20110526
  Receipt Date: 20110519
  Transmission Date: 20111010
  Serious: Yes (Other)
  Sender: FDA-Public Use
  Company Number: US-ROXANE LABORATORIES, INC.-2011-RO-00696RO

PATIENT
  Age: 37 Year
  Sex: Female

DRUGS (2)
  1. LIDOCAINE [Suspect]
     Indication: LOCAL ANAESTHESIA
     Dosage: 2 ML
     Route: 058
  2. EPINEPHRINE [Suspect]
     Indication: LOCAL ANAESTHESIA
     Route: 058

REACTIONS (1)
  - INJECTION SITE ISCHAEMIA [None]
